FAERS Safety Report 9103791 (Version 1)
Quarter: 2013Q1

REPORT INFORMATION
  Report Type: Spontaneous
  Country: SE (occurrence: SE)
  Receive Date: 20130219
  Receipt Date: 20130219
  Transmission Date: 20140127
  Serious: Yes (Other)
  Sender: FDA-Public Use
  Company Number: SE-UCBSA-078371

PATIENT
  Age: 81 Year
  Sex: Male

DRUGS (3)
  1. KEPPRA [Suspect]
     Indication: EPILEPSY
     Dosage: TOTAL DAILY DOSE: 1 GM
     Route: 048
     Dates: start: 20120608
  2. SERTRALIN [Interacting]
     Indication: DEPRESSED MOOD
     Dosage: TOTAL DAILY DOSE: 500 MG
     Route: 048
     Dates: start: 20120614
  3. WARAN [Interacting]
     Indication: ATRIAL FIBRILLATION
     Dates: start: 20100826

REACTIONS (2)
  - International normalised ratio decreased [Recovered/Resolved]
  - Drug interaction [Unknown]
